FAERS Safety Report 6010972-X (Version None)
Quarter: 2008Q4

REPORT INFORMATION
  Report Type: 
  Country: None (occurrence: None)
  Receive Date: 20081218
  Receipt Date: 20081215
  Transmission Date: 20090506
  Serious: Yes (Hospitalization)
  Sender: FDA-Public Use
  Company Number: B0543879A

PATIENT
  Age: 58 Year
  Sex: Male

DRUGS (6)
  1. LAMICTAL [Suspect]
     Indication: EPILEPSY
     Dosage: 25MG PER DAY
     Route: 048
     Dates: start: 20080730, end: 20080801
  2. URBANYL [Suspect]
     Indication: EPILEPSY
     Dosage: 10MG PER DAY
     Route: 048
     Dates: start: 20080724
  3. ADANCOR [Concomitant]
  4. ISOPTIN [Concomitant]
  5. KARDEGIC [Concomitant]
  6. INIPOMP [Concomitant]

REACTIONS (1)
  - HEPATOCELLULAR INJURY [None]
